FAERS Safety Report 15049701 (Version 1)
Quarter: 2018Q2

REPORT INFORMATION
  Report Type: Spontaneous
  Country: US (occurrence: US)
  Receive Date: 20180622
  Receipt Date: 20180622
  Transmission Date: 20180711
  Serious: No
  Sender: FDA-Public Use
  Company Number: US-ADAMAS PHARMA, LLC-2018ADA00549

PATIENT
  Age: 68 Year
  Sex: Female
  Weight: 108.84 kg

DRUGS (9)
  1. TAMOXIFEN [Concomitant]
     Active Substance: TAMOXIFEN
     Dosage: 20 MG, 1X/DAY
  2. FIBER [Concomitant]
     Active Substance: PSYLLIUM HUSK
  3. APAP #3 [Concomitant]
     Dosage: 1/2-1 1X/DAY AT BEDTIME
  4. CARBIDOPA-LEVODOPA [Concomitant]
     Active Substance: CARBIDOPA\LEVODOPA
  5. TRAMADOL. [Concomitant]
     Active Substance: TRAMADOL
     Dosage: 50 MG, 4X/DAY AS NEEDED
  6. BABY ASPRIN [Concomitant]
     Active Substance: ASPIRIN
  7. GOCOVRI [Suspect]
     Active Substance: AMANTADINE
     Indication: DYSKINESIA
     Dosage: 137 MG, 1X/DAY AT BEDTIME
     Dates: start: 20180321
  8. CALCIUM [Concomitant]
     Active Substance: CALCIUM
  9. PRAMIPEXOLE. [Concomitant]
     Active Substance: PRAMIPEXOLE
     Dosage: 1.5 MG, 3X/DAY

REACTIONS (4)
  - Hallucination, visual [Recovered/Resolved]
  - Dry mouth [Not Recovered/Not Resolved]
  - Somnolence [Not Recovered/Not Resolved]
  - Fatigue [Not Recovered/Not Resolved]

NARRATIVE: CASE EVENT DATE: 2018
